FAERS Safety Report 7813803-8 (Version None)
Quarter: 2011Q4

REPORT INFORMATION
  Report Type: 
  Country: None (occurrence: None)
  Receive Date: 20111014
  Receipt Date: 20111011
  Transmission Date: 20120403
  Serious: Yes (Other)
  Sender: FDA-Public Use
  Company Number: US-PFIZER INC-2011189874

PATIENT
  Sex: Male
  Weight: 107 kg

DRUGS (9)
  1. BENADRYL [Concomitant]
     Indication: SLEEP DISORDER
     Dosage: 25 MG, 1X/DAY
  2. PROTONIX [Suspect]
     Indication: GASTROOESOPHAGEAL REFLUX DISEASE
     Dosage: 40 MG, 1X/DAY
     Route: 048
     Dates: start: 20110728
  3. NEURONTIN [Concomitant]
     Indication: NEUROPATHY PERIPHERAL
     Dosage: 900 MG, 3X/DAY
  4. EFFEXOR XR [Concomitant]
     Dosage: 37.5 MG DAILY
  5. LISINOPRIL [Concomitant]
     Indication: HYPERTENSION
     Dosage: 10 MG, 1X/DAY
  6. NAPROXEN [Concomitant]
     Dosage: UNK
  7. ATENOLOL [Concomitant]
     Indication: HYPERTENSION
     Dosage: 25 MG, 1X/DAY
  8. MINOCYCLINE [Concomitant]
     Indication: ACNE
     Dosage: UNK
  9. EFFEXOR [Concomitant]
     Indication: DEPRESSION
     Dosage: 100 MG, 1X/DAY

REACTIONS (1)
  - DRUG SCREEN POSITIVE [None]
